FAERS Safety Report 6285983-X (Version None)
Quarter: 2009Q3

REPORT INFORMATION
  Report Type: 
  Country: None (occurrence: None)
  Receive Date: 20090728
  Receipt Date: 20090721
  Transmission Date: 20100115
  Serious: Yes (Hospitalization)
  Sender: FDA-Public Use
  Company Number: FR-JNJFOC-20090702898

PATIENT
  Sex: Male

DRUGS (9)
  1. IMODIUM [Suspect]
     Indication: DIARRHOEA
     Route: 048
     Dates: start: 20090613, end: 20090614
  2. ZINNAT [Suspect]
     Indication: SINUSITIS
     Route: 048
     Dates: start: 20090610, end: 20090614
  3. DILTIAZEM HCL [Suspect]
     Indication: ANGINA PECTORIS
     Route: 048
  4. COVERSYL [Suspect]
     Indication: HYPERTENSION
     Route: 048
  5. KARDEGIC [Suspect]
     Indication: PROPHYLAXIS
     Route: 048
  6. ELISOR [Suspect]
     Indication: HYPERCHOLESTEROLAEMIA
     Route: 048
  7. TRANXENE [Suspect]
     Indication: DRUG USE FOR UNKNOWN INDICATION
     Route: 048
  8. DOLIPRANE [Suspect]
     Indication: DRUG USE FOR UNKNOWN INDICATION
     Route: 048
  9. STILNOX [Suspect]
     Indication: INSOMNIA
     Route: 048

REACTIONS (1)
  - COLITIS ISCHAEMIC [None]
